FAERS Safety Report 5011053-4 (Version None)
Quarter: 2006Q2

REPORT INFORMATION
  Report Type: 
  Country: None (occurrence: None)
  Receive Date: 20060524
  Receipt Date: 20060524
  Transmission Date: 20061013
  Serious: Yes (Hospitalization)
  Sender: FDA-Public Use
  Company Number: None

PATIENT
  Age: 61 Year
  Sex: Female

DRUGS (1)
  1. BACLOFEN [Suspect]
     Indication: MUSCLE CONTRACTURE
     Dosage: CONTINUOUS IT
     Route: 037

REACTIONS (3)
  - DYSPNOEA [None]
  - MENTAL STATUS CHANGES [None]
  - PYREXIA [None]
